FAERS Safety Report 17327727 (Version 1)
Quarter: 2020Q1

REPORT INFORMATION
  Report Type: Spontaneous
  Country: SE (occurrence: SE)
  Receive Date: 20200127
  Receipt Date: 20200127
  Transmission Date: 20200409
  Serious: Yes (Hospitalization)
  Sender: FDA-Public Use
  Company Number: SE-MYLANLABS-2020M1008989

PATIENT
  Age: 45 Year
  Sex: Male

DRUGS (1)
  1. LERGIGAN (PROMETHAZINE HYDROCHLORIDE) [Suspect]
     Active Substance: PROMETHAZINE HYDROCHLORIDE
     Indication: PRODUCT USED FOR UNKNOWN INDICATION
     Dosage: ^SOM MEST 100 ST, EV MINDRE^
     Route: 048
     Dates: start: 20180305, end: 20180305

REACTIONS (9)
  - Intentional overdose [Unknown]
  - Intentional self-injury [Unknown]
  - Mydriasis [Unknown]
  - Opisthotonus [Unknown]
  - Fall [Unknown]
  - Loss of consciousness [Unknown]
  - Dysarthria [Unknown]
  - Dyspnoea [Unknown]
  - Myoclonus [Unknown]

NARRATIVE: CASE EVENT DATE: 20180305
